FAERS Safety Report 5916455-7 (Version None)
Quarter: 2008Q4

REPORT INFORMATION
  Report Type: 
  Country: None (occurrence: None)
  Receive Date: 20081013
  Receipt Date: 20080922
  Transmission Date: 20090506
  Serious: Yes (Hospitalization)
  Sender: FDA-Public Use
  Company Number: PHHY2008IE22450

PATIENT
  Sex: Male

DRUGS (1)
  1. CLOZARIL [Suspect]
     Indication: SCHIZOPHRENIA
     Dosage: 250 MG, QD
     Dates: start: 20080906

REACTIONS (7)
  - BLOOD PRESSURE FLUCTUATION [None]
  - CARDIAC DISORDER [None]
  - CONSTIPATION [None]
  - DYSPNOEA [None]
  - HEART RATE INCREASED [None]
  - LEFT VENTRICULAR HYPERTROPHY [None]
  - SALIVARY HYPERSECRETION [None]
